FAERS Safety Report 4815091-3 (Version None)
Quarter: 2005Q4

REPORT INFORMATION
  Report Type: 
  Country: None (occurrence: None)
  Receive Date: 20051027
  Receipt Date: 20051011
  Transmission Date: 20060501
  Serious: Yes (Hospitalization)
  Sender: FDA-Public Use
  Company Number: CIO05012376

PATIENT
  Age: 46 Year
  Sex: Female
  Weight: 56.7 kg

DRUGS (2)
  1. PEPTO-BISMOL MAXIMUM STRENGTH, ORIGINAL FLAVOR (BISMUT SUBSALICYLATE 5 [Suspect]
     Indication: NAUSEA
     Dosage: SEE IMAGE
     Route: 048
  2. UNSPECIFIED OVER THE COUNTER MEDICINE FOR GERD [Concomitant]

REACTIONS (11)
  - ABDOMINAL PAIN [None]
  - BLOOD PRESSURE INCREASED [None]
  - CONDITION AGGRAVATED [None]
  - DEHYDRATION [None]
  - DIARRHOEA [None]
  - FEAR [None]
  - GASTRITIS [None]
  - MALAISE [None]
  - NAUSEA [None]
  - VOMITING [None]
  - WHITE BLOOD CELL COUNT DECREASED [None]
